FAERS Safety Report 15710159 (Version 2)
Quarter: 2018Q4

REPORT INFORMATION
  Report Type: Spontaneous
  Country: GB (occurrence: GB)
  Receive Date: 20181211
  Receipt Date: 20181225
  Transmission Date: 20190205
  Serious: Yes (Hospitalization, Other)
  Sender: FDA-Public Use
  Company Number: PHHY2018GB174849

PATIENT
  Age: 75 Year
  Sex: Male

DRUGS (6)
  1. STALEVO [Interacting]
     Active Substance: CARBIDOPA\ENTACAPONE\LEVODOPA
     Indication: SALIVARY HYPERSECRETION
  2. ATROPINE. [Interacting]
     Active Substance: ATROPINE
     Indication: DROOLING
  3. RASAGILINE. [Interacting]
     Active Substance: RASAGILINE
     Indication: PARKINSON^S DISEASE
     Dosage: 1 MG, QD
     Route: 065
  4. STALEVO [Suspect]
     Active Substance: CARBIDOPA\ENTACAPONE\LEVODOPA
     Indication: PARKINSON^S DISEASE
     Dosage: 100/25/200 MG
     Route: 065
  5. PRAMIPEXOLE. [Interacting]
     Active Substance: PRAMIPEXOLE
     Indication: PARKINSON^S DISEASE
     Dosage: 2.62 MG, QD
     Route: 065
  6. ATROPINE. [Interacting]
     Active Substance: ATROPINE
     Indication: SALIVARY HYPERSECRETION
     Dosage: 0.5 ML, QD
     Route: 060

REACTIONS (17)
  - Hallucinations, mixed [Recovered/Resolved]
  - Parkinson^s disease [Recovered/Resolved]
  - Quality of life decreased [Recovered/Resolved]
  - Delirium [Recovered/Resolved]
  - Road traffic accident [Recovered/Resolved]
  - Gait disturbance [Recovered/Resolved]
  - Drug interaction [Recovered/Resolved]
  - Bradykinesia [Unknown]
  - Aggression [Recovered/Resolved]
  - Paranoia [Recovered/Resolved]
  - Psychotic disorder [Recovered/Resolved]
  - Confusional state [Recovered/Resolved]
  - Fall [Recovered/Resolved]
  - Off label use [Recovered/Resolved]
  - Drooling [Recovered/Resolved]
  - Condition aggravated [Recovered/Resolved]
  - Dysarthria [Recovered/Resolved]
